FAERS Safety Report 6674105-9 (Version None)
Quarter: 2010Q1

REPORT INFORMATION
  Report Type: 
  Country: None (occurrence: None)
  Receive Date: 20100329
  Receipt Date: 20091216
  Transmission Date: 20100710
  Serious: Yes (Other)
  Sender: FDA-Public Use
  Company Number: 2009313648

PATIENT
  Age: 29 Year
  Sex: Female

DRUGS (3)
  1. GEODON [Suspect]
     Indication: SCHIZOAFFECTIVE DISORDER
     Dosage: 160MG TWICE DAILY
  2. SEROQUEL [Concomitant]
  3. INDERAL [Concomitant]

REACTIONS (1)
  - OCULOGYRIC CRISIS [None]
